FAERS Safety Report 5392497-8 (Version None)
Quarter: 2007Q3

REPORT INFORMATION
  Report Type: 
  Country: None (occurrence: None)
  Receive Date: 20070720
  Receipt Date: 20070709
  Transmission Date: 20080115
  Serious: Yes (Other)
  Sender: FDA-Public Use
  Company Number: US-ELI_LILLY_AND_COMPANY-US200707002169

PATIENT
  Age: 31 Year
  Sex: Male

DRUGS (1)
  1. HUMALOG MIX 75/25 [Suspect]
     Dates: start: 19920101

REACTIONS (5)
  - CATARACT [None]
  - EYE HAEMORRHAGE [None]
  - EYE LASER SURGERY [None]
  - EYE OPERATION [None]
  - VISUAL DISTURBANCE [None]
